FAERS Safety Report 8876390 (Version 4)
Quarter: 2014Q3

REPORT INFORMATION
  Report Type: Spontaneous
  Country: US (occurrence: US)
  Receive Date: 20121031
  Receipt Date: 20140828
  Transmission Date: 20150326
  Serious: Yes (Hospitalization)
  Sender: FDA-Public Use
  Company Number: US-BAYER-2012-112424

PATIENT
  Age: 18 Year
  Sex: Female
  Weight: 72.56 kg

DRUGS (9)
  1. YAZ [Suspect]
     Active Substance: DROSPIRENONE\ETHINYL ESTRADIOL
     Indication: MENSTRUAL CYCLE MANAGEMENT
  2. MORPHINE [Concomitant]
     Active Substance: MORPHINE
     Indication: CONTRACEPTION
     Dosage: UNK
     Dates: start: 201001, end: 201006
  3. LASIX [Concomitant]
     Active Substance: FUROSEMIDE
     Dosage: UNK UNK, PRN
     Dates: start: 20100503
  4. YAZ [Suspect]
     Active Substance: DROSPIRENONE\ETHINYL ESTRADIOL
     Indication: CONTRACEPTION
     Dosage: UNK
     Dates: start: 201001, end: 201006
  5. PENICILLIN VK [Concomitant]
     Active Substance: PENICILLIN V POTASSIUM
     Indication: PROPHYLAXIS
     Dosage: UNK
     Dates: start: 20100503
  6. AZITHROMYCIN [Concomitant]
     Active Substance: AZITHROMYCIN ANHYDROUS
  7. HYDROCODONE BIT/APAP [Concomitant]
     Active Substance: ACETAMINOPHEN\HYDROCODONE BITARTRATE
  8. CEPHALEXIN. [Concomitant]
     Active Substance: CEPHALEXIN
  9. MORPHINE [Concomitant]
     Active Substance: MORPHINE
     Indication: MENSTRUATION IRREGULAR

REACTIONS (10)
  - Mental disorder [None]
  - Emotional distress [None]
  - Peripheral embolism [Recovering/Resolving]
  - General physical health deterioration [Recovered/Resolved]
  - Injury [Recovered/Resolved]
  - Pain in extremity [Recovered/Resolved]
  - Hypoaesthesia [Recovered/Resolved]
  - Pain [Recovered/Resolved]
  - Deep vein thrombosis [Recovered/Resolved]
  - Pain [None]

NARRATIVE: CASE EVENT DATE: 20100503
